FAERS Safety Report 5864986-0 (Version None)
Quarter: 2008Q3

REPORT INFORMATION
  Report Type: 
  Country: None (occurrence: None)
  Receive Date: 20080829
  Receipt Date: 20080717
  Transmission Date: 20090109
  Serious: No
  Sender: FDA-Public Use
  Company Number: US-ABBOTT-08P-163-0464195-00

PATIENT
  Sex: Male
  Weight: 89.892 kg

DRUGS (8)
  1. SIMCOR [Suspect]
     Indication: BLOOD CHOLESTEROL INCREASED
     Dosage: 500/20MG AT BEDTIME
     Route: 048
     Dates: start: 20080301
  2. MULTI-VITAMIN [Concomitant]
     Indication: DRUG USE FOR UNKNOWN INDICATION
     Route: 048
  3. FISH OIL [Concomitant]
     Indication: DRUG USE FOR UNKNOWN INDICATION
     Route: 048
  4. ASCORBIC ACID [Concomitant]
     Indication: DRUG USE FOR UNKNOWN INDICATION
  5. FAMOTIDINE [Concomitant]
     Indication: DYSPEPSIA
  6. VITAMIN E [Concomitant]
     Indication: DRUG USE FOR UNKNOWN INDICATION
  7. VITAMIN A [Concomitant]
     Indication: DRUG USE FOR UNKNOWN INDICATION
  8. VITAMIN D [Concomitant]
     Indication: DRUG USE FOR UNKNOWN INDICATION

REACTIONS (1)
  - FLUSHING [None]
